FAERS Safety Report 8208206 (Version 7)
Quarter: 2013Q2

REPORT INFORMATION
  Report Type: Report from Study
  Country: US (occurrence: US)
  Receive Date: 20111028
  Receipt Date: 20130515
  Transmission Date: 20140414
  Serious: Yes (Hospitalization, Other)
  Sender: FDA-Public Use
  Company Number: US-BRISTOL-MYERS SQUIBB COMPANY-16076382

PATIENT
  Age: 46 Year
  Sex: Female
  Weight: 85.2 kg

DRUGS (3)
  1. IPILIMUMAB [Suspect]
     Indication: MALIGNANT MELANOMA
     Dosage: LAST DOSE ON 07SEP11 858MG, 860MG?COURSE 4
     Route: 042
     Dates: start: 20110629, end: 20110907
  2. DECADRON [Suspect]
     Route: 048
  3. PREDNISONE [Concomitant]
     Route: 048

REACTIONS (4)
  - Adrenal insufficiency [Recovered/Resolved with Sequelae]
  - Hypophysitis [Recovered/Resolved with Sequelae]
  - Optic neuritis [Recovered/Resolved with Sequelae]
  - Hyponatraemia [Recovered/Resolved]
